FAERS Safety Report 4797291-4 (Version None)
Quarter: 2005Q4

REPORT INFORMATION
  Report Type: 
  Country: None (occurrence: None)
  Receive Date: 20051013
  Receipt Date: 20051003
  Transmission Date: 20060501
  Serious: Yes (Other)
  Sender: FDA-Public Use
  Company Number: GB-GLAXOSMITHKLINE-B0396105A

PATIENT
  Sex: Female

DRUGS (2)
  1. PAROXETINE HCL [Suspect]
  2. PARACETAMOL [Concomitant]

REACTIONS (7)
  - AGGRESSION [None]
  - COMPLETED SUICIDE [None]
  - CONFABULATION [None]
  - DRUG WITHDRAWAL SYNDROME [None]
  - ILL-DEFINED DISORDER [None]
  - LOSS OF LIBIDO [None]
  - OVERDOSE [None]
